FAERS Safety Report 9202249 (Version 1)
Quarter: 2013Q1

REPORT INFORMATION
  Report Type: Spontaneous
  Country: US (occurrence: None)
  Receive Date: 20130326
  Receipt Date: 20130326
  Transmission Date: 20140127
  Serious: Yes (Hospitalization)
  Sender: FDA-Public Use
  Company Number: IPC201303-000084

PATIENT
  Sex: Male
  Weight: 104.33 kg

DRUGS (4)
  1. METOPROLOL TARTRATE [Suspect]
     Indication: HYPERTENSION
     Dosage: 150 MG + 125 MG + 125 MG PER DAY.
     Route: 048
  2. METOPROLOL TARTRATE [Suspect]
     Indication: ATRIAL FIBRILLATION
     Dosage: 150 MG + 125 MG + 125 MG PER DAY.
     Route: 048
  3. NORVASC [Concomitant]
  4. AMLODIPINE BESYLATE [Concomitant]

REACTIONS (2)
  - Atrial fibrillation [None]
  - Product substitution issue [None]
